FAERS Safety Report 7415306-1 (Version None)
Quarter: 2011Q2

REPORT INFORMATION
  Report Type: 
  Country: None (occurrence: None)
  Receive Date: 20110414
  Receipt Date: 20110405
  Transmission Date: 20111010
  Serious: Yes (Other)
  Sender: FDA-Public Use
  Company Number: DE-ELI_LILLY_AND_COMPANY-DE201103008737

PATIENT
  Age: 56 Year
  Sex: Female
  Weight: 81 kg

DRUGS (4)
  1. AKINETON [Concomitant]
     Dosage: UNK, UNKNOWN
     Route: 065
     Dates: start: 20091201
  2. OLANZAPINE [Suspect]
     Dosage: 205 MG, FOUR WEEKLY
     Route: 030
     Dates: start: 20110301
  3. HALOPERIDOL [Concomitant]
     Indication: SCHIZOPHRENIA
     Dosage: 9 MG, QD
     Route: 065
     Dates: start: 20091201
  4. OLANZAPINE [Suspect]
     Indication: SCHIZOPHRENIA, PARANOID TYPE
     Dosage: 405 MG, FOUR WEEKLY
     Route: 030
     Dates: start: 20100921

REACTIONS (3)
  - SYNCOPE [None]
  - ASTHENIA [None]
  - FATIGUE [None]
